FAERS Safety Report 25896678 (Version 1)
Quarter: 2025Q4

REPORT INFORMATION
  Report Type: Other
  Country: US (occurrence: US)
  Receive Date: 20251008
  Receipt Date: 20251008
  Transmission Date: 20260118
  Serious: Yes (Death, Life-Threatening, Hospitalization, Other)
  Sender: APPCO PHARMA LLC
  Company Number: US-Appco Pharma LLC-2186167

PATIENT
  Age: 43 Year
  Sex: Male
  Weight: 160.2 kg

DRUGS (3)
  1. HYDROXYCHLOROQUINE SULFATE [Suspect]
     Active Substance: HYDROXYCHLOROQUINE SULFATE
     Indication: Product used for unknown indication
  2. TRAZODONE [Suspect]
     Active Substance: TRAZODONE HYDROCHLORIDE
  3. METFORMIN [Suspect]
     Active Substance: METFORMIN HYDROCHLORIDE

REACTIONS (12)
  - Multiple organ dysfunction syndrome [Fatal]
  - Electrocardiogram QT prolonged [Not Recovered/Not Resolved]
  - Electrocardiogram QRS complex prolonged [Not Recovered/Not Resolved]
  - Electrocardiogram PR prolongation [Recovered/Resolved]
  - Metabolic acidosis [Recovering/Resolving]
  - Depressed level of consciousness [Not Recovered/Not Resolved]
  - Hypotension [Not Recovered/Not Resolved]
  - Hypokalaemia [Recovered/Resolved]
  - Intentional overdose [Fatal]
  - Toxicity to various agents [Unknown]
  - Pneumonia aspiration [Not Recovered/Not Resolved]
  - Acute respiratory failure [Recovered/Resolved]
